APPROVED DRUG PRODUCT: TRIHEXYPHENIDYL HYDROCHLORIDE
Active Ingredient: TRIHEXYPHENIDYL HYDROCHLORIDE
Strength: 2MG/5ML
Dosage Form/Route: ELIXIR;ORAL
Application: A089514 | Product #001
Applicant: PHARMACEUTICAL VENTURES LTD
Approved: Apr 7, 1989 | RLD: No | RS: No | Type: DISCN